FAERS Safety Report 6234930-5 (Version None)
Quarter: 2009Q2

REPORT INFORMATION
  Report Type: 
  Country: None (occurrence: None)
  Receive Date: 20090618
  Receipt Date: 20090612
  Transmission Date: 20091009
  Serious: Yes (Hospitalization, Other)
  Sender: FDA-Public Use
  Company Number: A0792066A

PATIENT
  Age: 38 Year
  Sex: Male
  Weight: 73.6 kg

DRUGS (3)
  1. IMITREX [Suspect]
     Indication: MIGRAINE
     Route: 048
     Dates: start: 20090401, end: 20090529
  2. VYVANSE [Suspect]
     Dosage: 50MG PER DAY
     Route: 048
     Dates: start: 20080515, end: 20080529
  3. SYNTHROID [Concomitant]
     Dates: start: 20090101

REACTIONS (4)
  - CEREBELLAR HAEMORRHAGE [None]
  - CEREBRAL HAEMORRHAGE [None]
  - CEREBROVASCULAR ACCIDENT [None]
  - CEREBROVASCULAR SPASM [None]
